FAERS Safety Report 8308894-4 (Version None)
Quarter: 2012Q2

REPORT INFORMATION
  Report Type: 
  Country: None (occurrence: None)
  Receive Date: 20120424
  Receipt Date: 20120419
  Transmission Date: 20120825
  Serious: Yes (Life-Threatening, Other)
  Sender: FDA-Public Use
  Company Number: IT-BRISTOL-MYERS SQUIBB COMPANY-16538381

PATIENT
  Age: 84 Year
  Sex: Female

DRUGS (4)
  1. KARVEZIDE TABS 300MG/12.5MG [Suspect]
     Indication: HYPERTENSION
     Dates: start: 20080101, end: 20120407
  2. REPAGLINIDE [Suspect]
     Indication: DIABETES MELLITUS
     Dosage: (5MG+500MG TAB) 3 DOSAGE UNITS/DIE
     Route: 048
     Dates: start: 20120101, end: 20120407
  3. METFORMIN HCL [Suspect]
     Indication: DIABETES MELLITUS
     Dosage: METFORMINA TEVA
     Dates: start: 20080101, end: 20120407
  4. CLARITROMICINA [Concomitant]
     Dosage: 500MG FILM COVERED TAB CLARITROMICINA TEVA
     Route: 048
     Dates: start: 20120406, end: 20120406

REACTIONS (3)
  - LACTIC ACIDOSIS [None]
  - RENAL FAILURE ACUTE [None]
  - GASTROENTERITIS [None]
